FAERS Safety Report 8252162-6 (Version None)
Quarter: 2012Q2

REPORT INFORMATION
  Report Type: 
  Country: None (occurrence: None)
  Receive Date: 20120402
  Receipt Date: 20110413
  Transmission Date: 20120825
  Serious: No
  Sender: FDA-Public Use
  Company Number: US-ABBOTT-11P-163-0804437-00

PATIENT
  Sex: Male
  Weight: 81.818 kg

DRUGS (3)
  1. TESTOSTERONE [Suspect]
     Indication: BLOOD TESTOSTERONE DECREASED
     Dosage: DAILY DOSE: 5 GRAM(S)
     Route: 062
     Dates: start: 20110201
  2. ATORVASTATIN CALCIUM [Concomitant]
     Indication: BLOOD CHOLESTEROL INCREASED
     Dosage: DAILY DOSE:  UNKNOWN
     Route: 065
  3. MONTELUKAST SODIUM [Concomitant]
     Indication: SEASONAL ALLERGY
     Dosage: DAILY DOSE:  UNKNOWN
     Route: 065

REACTIONS (3)
  - HEARING IMPAIRED [None]
  - CATARACT [None]
  - VISUAL IMPAIRMENT [None]
